FAERS Safety Report 5520726-6 (Version None)
Quarter: 2007Q4

REPORT INFORMATION
  Report Type: 
  Country: None (occurrence: None)
  Receive Date: 20071115
  Receipt Date: 20071115
  Transmission Date: 20080405
  Serious: Yes (Life-Threatening)
  Sender: FDA-Public Use
  Company Number: None

PATIENT
  Age: 70 Year
  Sex: Male
  Weight: 87.0906 kg

DRUGS (2)
  1. CARVEDILOL [Suspect]
     Indication: BLOOD PRESSURE
     Dosage: 12.5MG 1 MORNING / EVENING PO
     Route: 048
     Dates: start: 20071016, end: 20071020
  2. CARVEDILOL [Suspect]
     Indication: MYOCARDIAL INFARCTION
     Dosage: 12.5MG 1 MORNING / EVENING PO
     Route: 048
     Dates: start: 20071016, end: 20071020

REACTIONS (4)
  - ANGINA PECTORIS [None]
  - BLOOD PRESSURE INCREASED [None]
  - DIZZINESS [None]
  - PAIN IN EXTREMITY [None]
